FAERS Safety Report 4855439-7 (Version None)
Quarter: 2005Q4

REPORT INFORMATION
  Report Type: 
  Country: None (occurrence: None)
  Receive Date: 20051125
  Receipt Date: 20050922
  Transmission Date: 20060501
  Serious: Yes (Hospitalization)
  Sender: FDA-Public Use
  Company Number: 2005-BP-10656BP

PATIENT
  Sex: Male

DRUGS (1)
  1. AGGRENOX [Suspect]
     Dates: start: 20041201

REACTIONS (1)
  - CEREBROVASCULAR ACCIDENT [None]
